FAERS Safety Report 8110141-3 (Version None)
Quarter: 2012Q1

REPORT INFORMATION
  Report Type: 
  Country: None (occurrence: None)
  Receive Date: 20120202
  Receipt Date: 20120125
  Transmission Date: 20120608
  Serious: No
  Sender: FDA-Public Use
  Company Number: US-AMGEN-USASP2012005056

PATIENT
  Age: 38 Year
  Sex: Female

DRUGS (1)
  1. ENBREL [Suspect]
     Indication: RHEUMATOID ARTHRITIS
     Dosage: 50 MG, QWK
     Dates: start: 20030801, end: 20120111

REACTIONS (9)
  - OEDEMA PERIPHERAL [None]
  - LARYNGITIS [None]
  - ARTHRALGIA [None]
  - DIARRHOEA [None]
  - COUGH [None]
  - JOINT STIFFNESS [None]
  - PAIN IN EXTREMITY [None]
  - JOINT SWELLING [None]
  - MUSCULOSKELETAL STIFFNESS [None]
